FAERS Safety Report 6751474-2 (Version None)
Quarter: 2010Q2

REPORT INFORMATION
  Report Type: 
  Country: None (occurrence: None)
  Receive Date: 20100602
  Receipt Date: 20100526
  Transmission Date: 20101027
  Serious: Yes (Other)
  Sender: FDA-Public Use
  Company Number: BR-ROCHE-700438

PATIENT
  Sex: Male
  Weight: 85 kg

DRUGS (3)
  1. ROACUTAN [Suspect]
     Indication: ACNE
     Route: 048
     Dates: start: 20080808, end: 20090101
  2. ROACUTAN [Suspect]
     Dosage: DOSE REDUCED
     Route: 048
     Dates: start: 20090101, end: 20090201
  3. ROACUTAN [Suspect]
     Dosage: NORMAL DOSAGE
     Route: 048
     Dates: start: 20090201, end: 20090501

REACTIONS (5)
  - ACNE [None]
  - ALANINE AMINOTRANSFERASE INCREASED [None]
  - BLOOD BILIRUBIN INCREASED [None]
  - BLOOD TEST ABNORMAL [None]
  - PHIMOSIS [None]
